FAERS Safety Report 24010900 (Version 1)
Quarter: 2024Q2

REPORT INFORMATION
  Report Type: Spontaneous
  Country: US (occurrence: US)
  Receive Date: 20240625
  Receipt Date: 20240625
  Transmission Date: 20240716
  Serious: Yes (Other)
  Sender: FDA-Public Use
  Company Number: US-BRISTOL-MYERS SQUIBB COMPANY-2024-100615

PATIENT
  Age: 87 Year
  Sex: Male

DRUGS (16)
  1. REVLIMID [Suspect]
     Active Substance: LENALIDOMIDE
     Indication: Plasma cell myeloma
     Route: 048
     Dates: start: 20240405
  2. REVLIMID [Suspect]
     Active Substance: LENALIDOMIDE
     Route: 048
     Dates: start: 20240620
  3. METOPROLOL [Concomitant]
     Active Substance: METOPROLOL
  4. ACYCLOVIR [Concomitant]
     Active Substance: ACYCLOVIR
  5. CENTRUM SILVER [ASCORBIC ACID;BIOTIN;CALCIUM;CALCIUM PANTOTHENATE;CHLO [Concomitant]
  6. BISACODYL [Concomitant]
     Active Substance: BISACODYL
  7. DOCUSATE [Concomitant]
     Active Substance: DOCUSATE
  8. MELATONIN [Concomitant]
     Active Substance: MELATONIN
  9. DEXAMETHASONE [Concomitant]
     Active Substance: DEXAMETHASONE
  10. ELIQUIS [Concomitant]
     Active Substance: APIXABAN
  11. MEGESTROL [Concomitant]
     Active Substance: MEGESTROL
  12. METOCLOPRAMIDE [Concomitant]
     Active Substance: METOCLOPRAMIDE
  13. MIRALAX [Concomitant]
     Active Substance: POLYETHYLENE GLYCOL 3350
  14. SENNA LEAF [Concomitant]
     Active Substance: SENNA LEAF
  15. NYSTATIN [Concomitant]
     Active Substance: NYSTATIN
  16. VELCADE [Concomitant]
     Active Substance: BORTEZOMIB

REACTIONS (1)
  - Renal impairment [Unknown]

NARRATIVE: CASE EVENT DATE: 20240620
